FAERS Safety Report 4536756-7 (Version None)
Quarter: 2004Q4

REPORT INFORMATION
  Report Type: 
  Country: None (occurrence: None)
  Receive Date: 20041223
  Receipt Date: 20040422
  Transmission Date: 20050328
  Serious: Yes (Hospitalization)
  Sender: FDA-Public Use
  Company Number: CH-ROCHE-365209

PATIENT
  Age: 49 Year
  Sex: Male
  Weight: 58 kg

DRUGS (2)
  1. PEGASYS [Suspect]
     Route: 065
     Dates: start: 20040115
  2. COPEGUS [Suspect]
     Route: 065
     Dates: start: 20040115

REACTIONS (6)
  - NAUSEA [None]
  - PALLOR [None]
  - PYREXIA [None]
  - RESTLESSNESS [None]
  - SYNCOPE [None]
  - VISUAL DISTURBANCE [None]
